FAERS Safety Report 5792316 (Version 18)
Quarter: 2014Q1

REPORT INFORMATION
  Report Type: Spontaneous
  Country: US (occurrence: US)
  Receive Date: 20050510
  Receipt Date: 20140326
  Transmission Date: 20141002
  Serious: Yes (Death, Hospitalization, Other)
  Sender: FDA-Public Use
  Company Number: PHEH2004US12293

PATIENT
  Age: 70 Year
  Sex: Female
  Weight: 56.69 kg

DRUGS (55)
  1. AREDIA [Suspect]
     Dosage: 90 MG, Q 4 WEEKS
     Route: 042
     Dates: start: 19980918, end: 20020314
  2. ZOMETA [Suspect]
     Indication: PLASMA CELL MYELOMA
     Dosage: 4 MG, Q 4 WEEKS
     Route: 042
     Dates: start: 20020411, end: 20040129
  3. CLINDAMYCIN HYDROCHLORIDE [Concomitant]
     Indication: OSTEONECROSIS
     Dosage: 300 MG, TID
     Route: 065
     Dates: start: 20031113, end: 20040809
  4. IMMUNOGLOBULINS [Concomitant]
     Indication: IMMUNOSUPPRESSION
     Dates: start: 200412
  5. PREMARIN                                /NEZ/ [Concomitant]
  6. PROVERA [Concomitant]
  7. NEUPOGEN [Concomitant]
  8. FOSAMAX [Concomitant]
  9. MELPHALAN [Concomitant]
  10. RITUXAN [Concomitant]
  11. GLUTAMINE [Concomitant]
     Dosage: 15 MG, TID
  12. PROCRIT                            /00909301/ [Concomitant]
  13. ELAVIL [Concomitant]
  14. OXYCODONE [Concomitant]
  15. ZOFRAN [Concomitant]
     Dosage: 4 MG, PRN
     Route: 048
  16. SEPTRA [Concomitant]
  17. HYDROXYZINE [Concomitant]
     Dosage: 50 MG, Q6H
  18. CIPROFLOXACIN [Concomitant]
     Dosage: 250 MG, QD
  19. ATIVAN [Concomitant]
  20. LASIX [Concomitant]
     Dosage: 20 MG, QD
     Route: 042
  21. SOLU-MEDROL [Concomitant]
     Dosage: 60 MG, QD
     Route: 042
  22. ATARAX [Concomitant]
     Dosage: 50 MG, Q6H
     Route: 048
  23. VALTREX [Concomitant]
  24. LYRICA [Concomitant]
  25. PERCOCET-5 [Concomitant]
  26. DILTIAZEM HYDROCHLORIDE [Concomitant]
     Dosage: 30 MG, QD
  27. THALIDOMIDE [Concomitant]
  28. ZOVIRAX [Concomitant]
     Route: 061
  29. PREDNISONE [Concomitant]
     Dosage: 40 MG, QD
     Route: 048
  30. VITAMIN B NOS [Concomitant]
  31. SENNA [Concomitant]
  32. PRILOSEC [Concomitant]
     Dosage: 20 MG
  33. DILTIAZEM [Concomitant]
     Dosage: 240 MG DAILY
  34. VINCRISTINE [Concomitant]
     Dosage: 2 MG, UNK
     Route: 042
  35. VALACICLOVIR HYDROCHLORIDE [Concomitant]
     Dosage: 1 DF, QD
     Route: 048
  36. KENALOG [Concomitant]
  37. DIFLUCAN [Concomitant]
     Dosage: 200 MG, UNK
     Route: 048
  38. ZOCOR [Concomitant]
     Dosage: 20 MG, QHS
     Route: 048
  39. CELEBREX [Concomitant]
     Dosage: 100 MG, BID
     Route: 048
  40. RAMIPRIL [Concomitant]
     Dosage: 2.5 MG, BID
     Route: 048
  41. TEMAZEPAM [Concomitant]
     Dosage: 1 DF, QHS
     Route: 048
  42. CARDIAZEM [Concomitant]
     Dosage: 30 MG, QD
     Route: 048
  43. ADRIAMYCIN [Concomitant]
  44. PROTONIX [Concomitant]
     Dosage: 40 MG, QD
     Route: 048
  45. MIRALAX [Concomitant]
     Dosage: 17 G, QD
     Route: 048
  46. METRONIDAZOLE [Concomitant]
     Dosage: 250 MG, Q8H
     Route: 048
  47. BISACODYL [Concomitant]
     Dosage: 10 MG, UNK
  48. VANCOMYCIN [Concomitant]
  49. GLIPIZIDE [Concomitant]
     Dosage: 5 MG, BID
     Route: 048
  50. LORATADINE [Concomitant]
     Dosage: 10 MG, QD
     Route: 048
  51. KYTRIL [Concomitant]
     Route: 042
  52. LEUKERAN [Concomitant]
     Dosage: 14 MG, QD
  53. PHENERGAN [Concomitant]
     Dosage: 25 MG, Q8H
     Route: 054
  54. CHEMOTHERAPEUTICS [Concomitant]
  55. ALLEGRA [Concomitant]

REACTIONS (109)
  - Neoplasm malignant [Fatal]
  - Sepsis [Unknown]
  - Diverticulitis [Unknown]
  - Empyema [Unknown]
  - Osteonecrosis of jaw [Recovering/Resolving]
  - Bone disorder [Not Recovered/Not Resolved]
  - Cellulitis [Unknown]
  - Gingival recession [Unknown]
  - Jaw disorder [Unknown]
  - Dental alveolar anomaly [Unknown]
  - Bone swelling [Unknown]
  - Osteitis [Unknown]
  - B-cell lymphoma [Unknown]
  - Pancytopenia [Unknown]
  - Mass [Unknown]
  - Type 2 diabetes mellitus [Not Recovered/Not Resolved]
  - Coronary artery disease [Not Recovered/Not Resolved]
  - Pleural effusion [Not Recovered/Not Resolved]
  - Anaemia [Not Recovered/Not Resolved]
  - Cholelithiasis [Unknown]
  - Atelectasis [Unknown]
  - Abscess intestinal [Unknown]
  - Thyroid cyst [Unknown]
  - Normochromic normocytic anaemia [Unknown]
  - Intraductal proliferative breast lesion [Unknown]
  - Fibrocystic breast disease [Unknown]
  - Breast hyperplasia [Unknown]
  - Dermatitis exfoliative [Unknown]
  - Epidermal necrosis [Unknown]
  - Beta 2 microglobulin increased [Unknown]
  - Blood immunoglobulin G decreased [Unknown]
  - Blood immunoglobulin A decreased [Unknown]
  - Blood immunoglobulin M increased [Unknown]
  - Conjunctivitis [Unknown]
  - Serum sickness [Unknown]
  - Skin fragility [Unknown]
  - Pruritus [Unknown]
  - Rash [Unknown]
  - Pyrexia [Unknown]
  - Haematuria [Unknown]
  - Blood urine [Unknown]
  - Asthenia [Unknown]
  - Weight decreased [Unknown]
  - Herpes zoster [Unknown]
  - Post herpetic neuralgia [Unknown]
  - Decubitus ulcer [Unknown]
  - Skin lesion [Unknown]
  - Pain [Unknown]
  - Failure to thrive [Unknown]
  - Vaginal haemorrhage [Unknown]
  - Lethargy [Unknown]
  - Delirium [Unknown]
  - Confusional state [Unknown]
  - Paranoia [Unknown]
  - Dysphagia [Unknown]
  - Foot fracture [Unknown]
  - Osteoarthritis [Unknown]
  - Dyspnoea [Unknown]
  - Hypoxia [Unknown]
  - Febrile neutropenia [Unknown]
  - Mitral valve incompetence [Unknown]
  - Aortic valve incompetence [Unknown]
  - Tricuspid valve incompetence [Unknown]
  - Cachexia [Recovering/Resolving]
  - Hypertension [Unknown]
  - Bone cancer [Unknown]
  - Depression [Unknown]
  - Lichenoid keratosis [Unknown]
  - Gait disturbance [Unknown]
  - Peroneal nerve palsy [Recovering/Resolving]
  - Diabetic neuropathy [Unknown]
  - Onychomycosis [Unknown]
  - Back pain [Unknown]
  - Abdominal mass [Unknown]
  - Chest pain [Unknown]
  - Chronic obstructive pulmonary disease [Unknown]
  - Pelvic abscess [Unknown]
  - Pneumonia [Unknown]
  - Abdominal distension [Unknown]
  - Vomiting [Unknown]
  - Gastrointestinal haemorrhage [Unknown]
  - Mental status changes [Unknown]
  - Arrhythmia [Unknown]
  - Blood cholesterol increased [Unknown]
  - Dyslipidaemia [Unknown]
  - Agranulocytosis [Unknown]
  - Plasma protein metabolism disorder [Unknown]
  - Hypogammaglobulinaemia [Unknown]
  - Aortic arteriosclerosis [Unknown]
  - Leukopenia [Unknown]
  - Hyperlipidaemia [Unknown]
  - Deep vein thrombosis [Unknown]
  - Immunosuppression [Unknown]
  - CD4 lymphocytes decreased [Unknown]
  - Urinary incontinence [Unknown]
  - Ovarian cancer [Unknown]
  - Pain in extremity [Unknown]
  - Memory impairment [Unknown]
  - Disorientation [Unknown]
  - Insomnia [Unknown]
  - Lymphoproliferative disorder [Unknown]
  - Scar [Unknown]
  - Dilatation ventricular [Unknown]
  - Cystitis [Unknown]
  - Erythema [Unknown]
  - Arthropathy [Unknown]
  - Atrioventricular block [Unknown]
  - Glossodynia [Unknown]
  - Cheilitis [Unknown]
